FAERS Safety Report 8988657 (Version 2)
Quarter: 2013Q1

REPORT INFORMATION
  Report Type: Spontaneous
  Country: DE (occurrence: DE)
  Receive Date: 20121228
  Receipt Date: 20130204
  Transmission Date: 20140127
  Serious: Yes (Other)
  Sender: FDA-Public Use
  Company Number: PHHY2012DE116922

PATIENT
  Age: 62 Year
  Sex: Female

DRUGS (1)
  1. AFINITOR [Suspect]
     Dosage: 10 MG, QD
     Route: 048
     Dates: start: 20120710, end: 20121130

REACTIONS (6)
  - Ascites [Unknown]
  - Fatigue [Unknown]
  - Dyspepsia [Unknown]
  - Cough [Unknown]
  - Nausea [Unknown]
  - Face oedema [Unknown]
